FAERS Safety Report 17223057 (Version 1)
Quarter: 2020Q1

REPORT INFORMATION
  Report Type: Other
  Country: DE (occurrence: DE)
  Receive Date: 20200102
  Receipt Date: 20200102
  Transmission Date: 20200409
  Serious: No
  Sender: FDA-Public Use
  Company Number: DE-LUPIN PHARMACEUTICALS INC.-2019-06497

PATIENT
  Age: 48 Year
  Sex: Male
  Weight: 73 kg

DRUGS (4)
  1. ATORVASTATIN CALCIUM. [Suspect]
     Active Substance: ATORVASTATIN CALCIUM
     Indication: HYPERLIPIDAEMIA
     Dosage: 20 MILLIGRAM, UNK
     Route: 065
     Dates: start: 201905
  2. SIMVA ARISTO [Suspect]
     Active Substance: SIMVASTATIN
     Indication: HYPERLIPIDAEMIA
     Dosage: UNK
     Route: 065
  3. SIMVASTATIN. [Suspect]
     Active Substance: SIMVASTATIN
     Indication: HYPERLIPIDAEMIA
     Dosage: 20 MILLIGRAM, UNK
     Route: 065
     Dates: start: 201106
  4. ATORVASTATIN CALCIUM. [Suspect]
     Active Substance: ATORVASTATIN CALCIUM
     Dosage: 20 MILLIGRAM, UNK TILL TODAY
     Route: 065
     Dates: start: 201906

REACTIONS (3)
  - Abdominal pain [Unknown]
  - Constipation [Unknown]
  - Abdominal distension [Unknown]

NARRATIVE: CASE EVENT DATE: 201406
